FAERS Safety Report 9996618 (Version 1)
Quarter: 2014Q1

REPORT INFORMATION
  Report Type: Spontaneous
  Country: CH (occurrence: CH)
  Receive Date: 20140311
  Receipt Date: 20140311
  Transmission Date: 20141002
  Serious: Yes (Hospitalization)
  Sender: FDA-Public Use
  Company Number: PHHY2014CH028156

PATIENT
  Age: 39 Year
  Sex: Male

DRUGS (4)
  1. LEPONEX [Suspect]
     Dosage: 3 DF, QD
     Route: 048
     Dates: end: 20130930
  2. PRIADEL [Suspect]
     Indication: BIPOLAR DISORDER
     Dosage: 1 DF, QD
     Route: 048
     Dates: start: 2003, end: 20130930
  3. BILOL [Concomitant]
     Dosage: UNK
  4. TEMESTA [Concomitant]
     Dosage: UNK

REACTIONS (12)
  - Kidney fibrosis [Unknown]
  - Renal tubular atrophy [Unknown]
  - Nephrogenic diabetes insipidus [Unknown]
  - Antidepressant drug level increased [Recovered/Resolved]
  - Gait disturbance [Recovered/Resolved]
  - Fall [Recovered/Resolved]
  - Dysarthria [Recovered/Resolved]
  - Aphasia [Recovered/Resolved]
  - Antipsychotic drug level increased [Recovered/Resolved]
  - Renal failure chronic [Not Recovered/Not Resolved]
  - Confusional state [Recovered/Resolved]
  - Diarrhoea [Recovered/Resolved]
